FAERS Safety Report 6961070-X (Version None)
Quarter: 2010Q3

REPORT INFORMATION
  Report Type: 
  Country: None (occurrence: None)
  Receive Date: 20100823
  Receipt Date: 20100707
  Transmission Date: 20110219
  Serious: No
  Sender: FDA-Public Use
  Company Number: 015192

PATIENT
  Age: 49 Year
  Sex: Female
  Weight: 66 kg

DRUGS (3)
  1. CIMZIA [Suspect]
     Indication: CROHN'S DISEASE
     Dosage: SUBCUTANEOUS
     Route: 058
     Dates: start: 20100629
  2. CYMBALTA [Concomitant]
  3. ABILIFY [Concomitant]

REACTIONS (2)
  - FATIGUE [None]
  - PAIN [None]
